FAERS Safety Report 12093167 (Version 1)
Quarter: 2016Q1

REPORT INFORMATION
  Report Type: Spontaneous
  Country: US (occurrence: US)
  Receive Date: 20160219
  Receipt Date: 20160219
  Transmission Date: 20160526
  Serious: No
  Sender: FDA-Public Use
  Company Number: US-TEVA-621142USA

PATIENT
  Sex: Male

DRUGS (2)
  1. AMPHETAMINE W/DEXTROAMPHETAMINE [Suspect]
     Active Substance: AMPHETAMINE SULFATE\DEXTROAMPHETAMINE
     Indication: MAJOR DEPRESSION
  2. AMPHETAMINE W/DEXTROAMPHETAMINE [Suspect]
     Active Substance: AMPHETAMINE SULFATE\DEXTROAMPHETAMINE
     Indication: ATTENTION DEFICIT/HYPERACTIVITY DISORDER
     Route: 065

REACTIONS (8)
  - Depression [Unknown]
  - Mood altered [Unknown]
  - Disturbance in attention [Unknown]
  - Drug ineffective [Unknown]
  - Affect lability [Unknown]
  - Confusional state [Unknown]
  - Attention deficit/hyperactivity disorder [Unknown]
  - Anxiety [Unknown]
